FAERS Safety Report 22268468 (Version 1)
Quarter: 2023Q2

REPORT INFORMATION
  Report Type: Spontaneous
  Country: US (occurrence: US)
  Receive Date: 20230430
  Receipt Date: 20230430
  Transmission Date: 20230721
  Serious: No
  Sender: FDA-Public Use
  Company Number: US-SANOFI-01586701

PATIENT
  Age: 8 Year
  Sex: Female
  Weight: 23.3 kg

DRUGS (1)
  1. CHILDRENS XYZAL ALLERGY 24HR [Suspect]
     Active Substance: LEVOCETIRIZINE DIHYDROCHLORIDE
     Dosage: 5ML AN HOUR AGO
     Route: 065

REACTIONS (2)
  - Pruritus [Unknown]
  - Rash [Unknown]
